FAERS Safety Report 8167339-8 (Version None)
Quarter: 2012Q1

REPORT INFORMATION
  Report Type: 
  Country: None (occurrence: None)
  Receive Date: 20120227
  Receipt Date: 20120223
  Transmission Date: 20120608
  Serious: No
  Sender: FDA-Public Use
  Company Number: US-PFIZER INC-2012004922

PATIENT
  Sex: Male

DRUGS (3)
  1. ATORVASTATIN [Suspect]
     Dosage: UNK
     Dates: start: 20111201
  2. LIPITOR [Suspect]
     Dosage: UNK
     Route: 048
     Dates: end: 20120101
  3. ATORVASTATIN [Suspect]
     Dosage: UNK
     Dates: start: 20120201

REACTIONS (1)
  - MUSCLE SPASMS [None]
